FAERS Safety Report 25572284 (Version 2)
Quarter: 2025Q4

REPORT INFORMATION
  Report Type: Report from Study
  Country: US (occurrence: US)
  Receive Date: 20250717
  Receipt Date: 20251017
  Transmission Date: 20260117
  Serious: Yes (Hospitalization)
  Sender: ABBVIE
  Company Number: US-ABBVIE-6373436

PATIENT
  Age: 75 Year
  Sex: Female

DRUGS (2)
  1. RINVOQ [Suspect]
     Active Substance: UPADACITINIB
     Indication: Rheumatoid arthritis
     Dosage: STRENGTH: 15MG?END DATE APR 2025
     Route: 048
     Dates: start: 202504, end: 20251007
  2. RINVOQ [Suspect]
     Active Substance: UPADACITINIB
     Indication: Rheumatoid arthritis
     Dosage: STRENGTH: 15MG
     Route: 048
     Dates: start: 202510

REACTIONS (14)
  - Blood potassium increased [Unknown]
  - Face injury [Recovering/Resolving]
  - Hand fracture [Recovering/Resolving]
  - Balance disorder [Recovering/Resolving]
  - Pain [Recovering/Resolving]
  - Fall [Recovering/Resolving]
  - Tooth fracture [Recovering/Resolving]
  - Rheumatoid arthritis [Recovering/Resolving]
  - Pyrexia [Unknown]
  - Chills [Not Recovered/Not Resolved]
  - Hyperhidrosis [Not Recovered/Not Resolved]
  - Fatigue [Unknown]
  - Abdominal pain upper [Unknown]
  - Urinary tract infection [Unknown]

NARRATIVE: CASE EVENT DATE: 20250101
